FAERS Safety Report 23868598 (Version 1)
Quarter: 2024Q2

REPORT INFORMATION
  Report Type: Spontaneous
  Country: US (occurrence: US)
  Receive Date: 20240517
  Receipt Date: 20240517
  Transmission Date: 20240716
  Serious: Yes (Other)
  Sender: FDA-Public Use
  Company Number: US-Albireo AB-2024ALB000182

PATIENT
  Sex: Female

DRUGS (1)
  1. BYLVAY [Suspect]
     Active Substance: ODEVIXIBAT
     Indication: Product used for unknown indication
     Route: 065

REACTIONS (3)
  - Cholestasis of pregnancy [Recovered/Resolved]
  - Bile acids increased [Not Recovered/Not Resolved]
  - Exposure during pregnancy [Unknown]
